FAERS Safety Report 5235089-3 (Version None)
Quarter: 2007Q1

REPORT INFORMATION
  Report Type: 
  Country: None (occurrence: None)
  Receive Date: 20070207
  Receipt Date: 20070201
  Transmission Date: 20070707
  Serious: Yes (Life-Threatening)
  Sender: FDA-Public Use
  Company Number: 2006S1000063

PATIENT
  Age: 4 Day
  Sex: Male

DRUGS (9)
  1. NITRIC OXIDE [Suspect]
     Indication: LUNG DISORDER
     Dosage: 5 PPM;INH_GAS;INH;CONT
     Route: 055
     Dates: start: 20060330, end: 20060407
  2. NITRIC OXIDE [Suspect]
     Indication: PROPHYLAXIS
     Dosage: 5 PPM;INH_GAS;INH;CONT
     Route: 055
     Dates: start: 20060330, end: 20060407
  3. PHYTONADIONE [Concomitant]
  4. AMPICILLIN [Concomitant]
  5. GENTAMICIN [Concomitant]
  6. CUROSURF [Concomitant]
  7. COLECALCIFEROL [Concomitant]
  8. IRON [Concomitant]
  9. CALCIUM GLUCONATE [Concomitant]

REACTIONS (2)
  - INTRAVENTRICULAR HAEMORRHAGE NEONATAL [None]
  - PERIVENTRICULAR LEUKOMALACIA [None]
